FAERS Safety Report 13306673 (Version 1)
Quarter: 2017Q1

REPORT INFORMATION
  Report Type: Spontaneous
  Country: US (occurrence: US)
  Receive Date: 20170308
  Receipt Date: 20170308
  Transmission Date: 20170428
  Serious: No
  Sender: FDA-Public Use
  Company Number: US-AKORN PHARMACEUTICALS-2016AKN00174

PATIENT
  Age: 28 Year
  Sex: Female
  Weight: 63.49 kg

DRUGS (2)
  1. MYORISAN [Suspect]
     Active Substance: ISOTRETINOIN
     Indication: ACNE CYSTIC
     Dosage: 40 MG, 1X/DAY; 40 MG IN AM, 20 MG AT NIGHT
     Route: 048
     Dates: start: 20160308
  2. MYORISAN [Suspect]
     Active Substance: ISOTRETINOIN
     Dosage: 20 MG, 1X/DAY; 40 MG IN AM, 20 MG AT NIGHT
     Route: 048
     Dates: start: 20160308

REACTIONS (3)
  - Rash [Recovering/Resolving]
  - Drug dispensing error [Unknown]
  - Pruritus [Recovering/Resolving]

NARRATIVE: CASE EVENT DATE: 201603
